FAERS Safety Report 23858899 (Version 2)
Quarter: 2024Q2

REPORT INFORMATION
  Report Type: Report from Study
  Country: CA (occurrence: CA)
  Receive Date: 20240515
  Receipt Date: 20240612
  Transmission Date: 20240716
  Serious: Yes (Death, Other)
  Sender: FDA-Public Use
  Company Number: CA-HLS-202401170

PATIENT
  Age: 29 Year
  Sex: Male

DRUGS (1)
  1. CLOZARIL [Suspect]
     Active Substance: CLOZAPINE
     Indication: Schizophrenia
     Dosage: DAILY AT BEDTIME
     Route: 048
     Dates: start: 2020, end: 20240506

REACTIONS (1)
  - Death [Fatal]

NARRATIVE: CASE EVENT DATE: 20240506
